FAERS Safety Report 6427534-2 (Version None)
Quarter: 2009Q4

REPORT INFORMATION
  Report Type: 
  Country: None (occurrence: None)
  Receive Date: 20091104
  Receipt Date: 20091030
  Transmission Date: 20100525
  Serious: Yes (Hospitalization)
  Sender: FDA-Public Use
  Company Number: US-GILEAD-2009-0024801

PATIENT
  Sex: Male
  Weight: 102.15 kg

DRUGS (10)
  1. LETAIRIS [Suspect]
     Indication: PULMONARY ARTERIAL HYPERTENSION
     Route: 048
     Dates: start: 20090702
  2. FUROSEMIDE [Concomitant]
  3. COZAAR [Concomitant]
  4. LIPITOR [Concomitant]
  5. ALLOPURINOL [Concomitant]
  6. NEXIUM [Concomitant]
  7. WARFARIN SODIUM [Concomitant]
  8. ALDACTONE [Concomitant]
  9. K-DUR [Concomitant]
  10. FLOMAX [Concomitant]

REACTIONS (3)
  - ANAEMIA [None]
  - CARDIAC FAILURE CONGESTIVE [None]
  - DYSPNOEA [None]
